FAERS Safety Report 5179067-1 (Version None)
Quarter: 2006Q4

REPORT INFORMATION
  Report Type: 
  Country: None (occurrence: None)
  Receive Date: 20061219
  Receipt Date: 20061211
  Transmission Date: 20070319
  Serious: Yes (Other)
  Sender: FDA-Public Use
  Company Number: CA-JNJFOC-20061203240

PATIENT
  Sex: Female

DRUGS (3)
  1. MONISTAT 7 [Suspect]
     Route: 067
  2. MONISTAT 7 [Suspect]
     Indication: DRUG USE FOR UNKNOWN INDICATION
     Route: 067
  3. INHALERS [Concomitant]
     Indication: ASTHMA

REACTIONS (3)
  - DYSPNOEA [None]
  - GENITAL PRURITUS FEMALE [None]
  - VAGINAL BURNING SENSATION [None]
